FAERS Safety Report 14698063 (Version 1)
Quarter: 2018Q1

REPORT INFORMATION
  Report Type: Spontaneous
  Country: GB (occurrence: GB)
  Receive Date: 20180330
  Receipt Date: 20180330
  Transmission Date: 20180509
  Serious: Yes (Other)
  Sender: FDA-Public Use
  Company Number: GB-CONCORDIA PHARMACEUTICALS INC.-E2B_00010761

PATIENT
  Sex: Female

DRUGS (4)
  1. MYCOPHENOLIC ACID. [Suspect]
     Active Substance: MYCOPHENOLIC ACID
     Indication: IMMUNODEFICIENCY COMMON VARIABLE
  2. PREDNISOLONE. [Suspect]
     Active Substance: PREDNISOLONE
     Indication: GASTROINTESTINAL INFLAMMATION
  3. MYCOPHENOLIC ACID. [Suspect]
     Active Substance: MYCOPHENOLIC ACID
     Indication: ARTHRITIS
  4. PREDNISOLONE. [Suspect]
     Active Substance: PREDNISOLONE
     Indication: ARTHRITIS
     Dosage: LOW DOSE

REACTIONS (2)
  - Gastric ulcer [Unknown]
  - Cytomegalovirus viraemia [Unknown]
